FAERS Safety Report 7577977-9 (Version None)
Quarter: 2011Q2

REPORT INFORMATION
  Report Type: 
  Country: None (occurrence: None)
  Receive Date: 20110628
  Receipt Date: 20110620
  Transmission Date: 20111010
  Serious: Yes (Death)
  Sender: FDA-Public Use
  Company Number: US-ROCHE-785169

PATIENT
  Age: 20 Year
  Sex: Male

DRUGS (4)
  1. OXYCODONE HCL [Suspect]
     Route: 065
  2. AMPHETAMINES [Suspect]
     Route: 065
  3. OXYMORPHONE [Suspect]
     Route: 065
  4. CLONAZEPAM [Suspect]
     Route: 065

REACTIONS (1)
  - ANALGESIC DRUG LEVEL INCREASED [None]
